FAERS Safety Report 10137150 (Version 1)
Quarter: 2014Q2

REPORT INFORMATION
  Report Type: Spontaneous
  Country: US (occurrence: US)
  Receive Date: 20140429
  Receipt Date: 20140429
  Transmission Date: 20141212
  Serious: No
  Sender: FDA-Public Use
  Company Number: US-ABBVIE-14P-163-1223729-00

PATIENT
  Sex: Male
  Weight: 111.23 kg

DRUGS (3)
  1. ANDROGEL [Suspect]
     Indication: BLOOD TESTOSTERONE DECREASED
     Dosage: ONCE IN THE MORNING AND ONCE IN THE EVENING
     Dates: start: 2012, end: 201404
  2. ANDROGEL [Suspect]
     Dosage: 1/2 PUMP ACTUATION IN THE MORNING AND EVENING
     Dates: start: 201404
  3. ANDROGEL [Suspect]
     Indication: BLOOD TESTOSTERONE DECREASED

REACTIONS (3)
  - Haematocrit increased [Recovered/Resolved]
  - Blood testosterone increased [Recovered/Resolved]
  - Blood testosterone decreased [Not Recovered/Not Resolved]
